FAERS Safety Report 12248396 (Version 1)
Quarter: 2016Q2

REPORT INFORMATION
  Report Type: Spontaneous
  Country: US (occurrence: None)
  Receive Date: 20160407
  Receipt Date: 20160407
  Transmission Date: 20160815
  Serious: Yes (Hospitalization)
  Sender: FDA-Public Use
  Company Number: None

PATIENT
  Age: 66 Year
  Sex: Male

DRUGS (20)
  1. QVAR [Concomitant]
     Active Substance: BECLOMETHASONE DIPROPIONATE
  2. APAP/CODEINE [Concomitant]
     Active Substance: ACETAMINOPHEN\CODEINE PHOSPHATE
  3. ALBUTEROL. [Concomitant]
     Active Substance: ALBUTEROL
  4. AMIODARONE [Concomitant]
     Active Substance: AMIODARONE
  5. HYDROCO/APAP [Concomitant]
     Active Substance: ACETAMINOPHEN\HYDROCODONE
  6. SPIRIVA [Concomitant]
     Active Substance: TIOTROPIUM BROMIDE MONOHYDRATE
  7. WARFARIN [Concomitant]
     Active Substance: WARFARIN
  8. CIPROFLOXACN [Concomitant]
     Active Substance: CIPROFLOXACIN
  9. HYDRALAZINE [Concomitant]
     Active Substance: HYDRALAZINE HYDROCHLORIDE
  10. MOMETASONE [Concomitant]
     Active Substance: MOMETASONE
  11. PROAIR HFA [Concomitant]
     Active Substance: ALBUTEROL SULFATE
  12. SENNA [Concomitant]
     Active Substance: SENNA LEAF\SENNOSIDES\SENNOSIDES A AND B
  13. ADCIRCA [Suspect]
     Active Substance: TADALAFIL
     Indication: PULMONARY ARTERIAL HYPERTENSION
     Dosage: 2 TABS DAILY PO
     Route: 048
     Dates: start: 20160209
  14. AMOXICILLIN. [Concomitant]
     Active Substance: AMOXICILLIN
  15. TORSEMIDE. [Concomitant]
     Active Substance: TORSEMIDE
  16. ATROVASTATIN [Concomitant]
     Active Substance: ATORVASTATIN CALCIUM
  17. CULTUERELLE [Concomitant]
  18. LANTUS [Concomitant]
     Active Substance: INSULIN GLARGINE
  19. METOPROLOL. [Concomitant]
     Active Substance: METOPROLOL
  20. SPIRONOLACT [Concomitant]

REACTIONS (1)
  - Cardiac failure congestive [None]

NARRATIVE: CASE EVENT DATE: 201603
